FAERS Safety Report 18990321 (Version 1)
Quarter: 2021Q1

REPORT INFORMATION
  Report Type: Report from Study
  Country: US (occurrence: US)
  Receive Date: 20210310
  Receipt Date: 20210310
  Transmission Date: 20210420
  Serious: Yes (Other)
  Sender: FDA-Public Use
  Company Number: US-JNJFOC-20210308049

PATIENT
  Age: 45 Year
  Sex: Female

DRUGS (4)
  1. SPRAVATO [Suspect]
     Active Substance: ESKETAMINE
     Dates: start: 20210226
  2. SPRAVATO [Suspect]
     Active Substance: ESKETAMINE
     Dates: start: 20200418, end: 20200814
  3. SPRAVATO [Suspect]
     Active Substance: ESKETAMINE
     Indication: DEPRESSION
     Dates: start: 20200328, end: 20200415
  4. SPRAVATO [Suspect]
     Active Substance: ESKETAMINE
     Dates: start: 20200418, end: 20200814

REACTIONS (1)
  - Cardiac operation [Unknown]
